FAERS Safety Report 24383396 (Version 1)
Quarter: 2024Q4

REPORT INFORMATION
  Report Type: Spontaneous
  Country: CN (occurrence: CN)
  Receive Date: 20241001
  Receipt Date: 20241001
  Transmission Date: 20250114
  Serious: Yes (Other)
  Sender: PFIZER
  Company Number: CN-PFIZER INC-PV202400125669

PATIENT
  Age: 84 Year
  Sex: Male
  Weight: 67 kg

DRUGS (4)
  1. EPIRUBICIN HYDROCHLORIDE [Suspect]
     Active Substance: EPIRUBICIN HYDROCHLORIDE
     Indication: Hepatic cancer
     Dosage: 50 MG, 1X/DAY VIA HEPATIC ARTERY PERFUSION
     Route: 013
     Dates: start: 20240906, end: 20240906
  2. OXALIPLATIN [Suspect]
     Active Substance: OXALIPLATIN
     Indication: Hepatic cancer
     Dosage: 60 MG, 1X/DAY VIA HEPATIC ARTERY PERFUSION
     Route: 013
     Dates: start: 20240906, end: 20240906
  3. IODINE [Concomitant]
     Active Substance: IODINE
     Indication: Therapeutic procedure
     Dosage: 5 ML, 1X/DAY VIA HEPATIC ARTERY PERFUSION
     Dates: start: 20240906, end: 20240906
  4. DEXTROSE [Concomitant]
     Active Substance: DEXTROSE MONOHYDRATE
     Indication: Vehicle solution use
     Dosage: 250 ML, 1X/DAY VIA HEPATIC ARTERY PERFUSION
     Dates: start: 20240906, end: 20240906

REACTIONS (2)
  - Hepatic function abnormal [Recovered/Resolved]
  - Off label use [Unknown]

NARRATIVE: CASE EVENT DATE: 20240906
